FAERS Safety Report 17095180 (Version 2)
Quarter: 2019Q4

REPORT INFORMATION
  Report Type: Spontaneous
  Country: US (occurrence: US)
  Receive Date: 20191130
  Receipt Date: 20191210
  Transmission Date: 20200122
  Serious: Yes (Hospitalization)
  Sender: FDA-Public Use
  Company Number: US-FRESENIUS MEDICAL CARE RENAL THERAPIES GROUP-FMC-1911-001515

PATIENT
  Sex: Female
  Weight: 122 kg

DRUGS (22)
  1. DELFLEX WITH DEXTROSE 2.5% LOW MAGNESIUM LOW CALCIUM [Suspect]
     Active Substance: CALCIUM CHLORIDE\DEXTROSE\MAGNESIUM CHLORIDE\SODIUM CHLORIDE\SODIUM LACTATE
     Indication: END STAGE RENAL DISEASE
     Dosage: FILL VOLUME = 2500 ML, 5 EXCHANGES, NO LAST FILL, NO DAYTIME EXCHANGE, 8 HOURS TOTAL
     Route: 033
  2. PROAIR HFA [Concomitant]
     Active Substance: ALBUTEROL SULFATE
  3. ZOLOFT [Concomitant]
     Active Substance: SERTRALINE HYDROCHLORIDE
  4. ADALAT [Concomitant]
     Active Substance: NIFEDIPINE
  5. ASPIRIN. [Concomitant]
     Active Substance: ASPIRIN
  6. PLAVIX [Concomitant]
     Active Substance: CLOPIDOGREL BISULFATE
  7. ZETIA [Concomitant]
     Active Substance: EZETIMIBE
  8. TRAZODONE [Concomitant]
     Active Substance: TRAZODONE HYDROCHLORIDE
  9. DELFLEX WITH DEXTROSE 4.25% LOW MAGNESIUM LOW CALCIUM [Suspect]
     Active Substance: CALCIUM CHLORIDE\DEXTROSE\MAGNESIUM CHLORIDE\SODIUM CHLORIDE\SODIUM LACTATE
     Indication: END STAGE RENAL DISEASE
     Dosage: FILL VOLUME = 2500 ML, 5 EXCHANGES, NO LAST FILL, NO DAYTIME EXCHANGE, 8 HOURS TOTAL
     Route: 033
  10. MYCOSTATIN [Concomitant]
     Active Substance: NYSTATIN
  11. LAXATIVES [Concomitant]
     Active Substance: UNSPECIFIED INGREDIENT
  12. ALBUTEROL. [Concomitant]
     Active Substance: ALBUTEROL
  13. LIPITOR [Concomitant]
     Active Substance: ATORVASTATIN CALCIUM
  14. CALCITRIOL. [Concomitant]
     Active Substance: CALCITRIOL
  15. LASIX [Concomitant]
     Active Substance: FUROSEMIDE
  16. APRESOLINE HYDROCHLORIDE [Concomitant]
     Active Substance: HYDRALAZINE HYDROCHLORIDE
  17. DELFLEX WITH DEXTROSE 1.5% LOW MAGNESIUM LOW CALCIUM [Suspect]
     Active Substance: CALCIUM CHLORIDE\DEXTROSE\MAGNESIUM CHLORIDE\SODIUM CHLORIDE\SODIUM LACTATE
     Indication: END STAGE RENAL DISEASE
     Dosage: FILL VOLUME = 2500 ML, 5 EXCHANGES, NO LAST FILL, NO DAYTIME EXCHANGE, 8 HOURS TOTAL
     Route: 033
  18. COLACE [Concomitant]
     Active Substance: DOCUSATE SODIUM
  19. NORCO [Concomitant]
     Active Substance: ACETAMINOPHEN\HYDROCODONE BITARTRATE
  20. LEVEMIR [Concomitant]
     Active Substance: INSULIN DETEMIR
  21. SENSIPAR [Concomitant]
     Active Substance: CINACALCET HYDROCHLORIDE
  22. ADVAIR HFA [Concomitant]
     Active Substance: FLUTICASONE PROPIONATE\SALMETEROL XINAFOATE

REACTIONS (3)
  - Treatment noncompliance [Unknown]
  - Device malfunction [Unknown]
  - Pulmonary oedema [Recovering/Resolving]
